FAERS Safety Report 6948293-0 (Version None)
Quarter: 2010Q3

REPORT INFORMATION
  Report Type: 
  Country: None (occurrence: None)
  Receive Date: 20100828
  Receipt Date: 20100817
  Transmission Date: 20110219
  Serious: Yes (Death)
  Sender: FDA-Public Use
  Company Number: GB-PAR PHARMACEUTICAL, INC-2010SCPR002000

PATIENT

DRUGS (1)
  1. GLYCOPYRROLATE [Suspect]
     Indication: SALIVARY HYPERSECRETION
     Dosage: 0.050 MG/KG, UNKNOWN
     Route: 065

REACTIONS (3)
  - ASPIRATION [None]
  - DEATH [None]
  - VOMITING [None]
